FAERS Safety Report 17065422 (Version 2)
Quarter: 2019Q4

REPORT INFORMATION
  Report Type: Report from Study
  Country: BR (occurrence: BR)
  Receive Date: 20191122
  Receipt Date: 20191127
  Transmission Date: 20200122
  Serious: Yes (Other)
  Sender: FDA-Public Use
  Company Number: BR-GLAXOSMITHKLINE-BR2016GSK027013

PATIENT
  Age: 21 Year
  Sex: Female
  Weight: 59 kg

DRUGS (5)
  1. HYDROXYCHLOROQUINE [Concomitant]
     Active Substance: HYDROXYCHLOROQUINE
     Indication: PRODUCT USED FOR UNKNOWN INDICATION
     Dosage: 400 MG, UNK, 5 DAYS A WEEK
  2. BELIMUMAB [Suspect]
     Active Substance: BELIMUMAB
     Indication: SYSTEMIC LUPUS ERYTHEMATOSUS
     Dosage: 520 MG, CYC
     Dates: start: 20141013
  3. REUQUINOL [Concomitant]
     Active Substance: HYDROXYCHLOROQUINE SULFATE
     Indication: PRODUCT USED FOR UNKNOWN INDICATION
     Dosage: UNK
  4. PREDNISONE. [Concomitant]
     Active Substance: PREDNISONE
     Indication: PRODUCT USED FOR UNKNOWN INDICATION
     Dosage: UNK
  5. AZATHIOPRINE. [Concomitant]
     Active Substance: AZATHIOPRINE
     Indication: PRODUCT USED FOR UNKNOWN INDICATION
     Dosage: UNK

REACTIONS (16)
  - Product dose omission [Not Recovered/Not Resolved]
  - Maternal exposure during breast feeding [Unknown]
  - Weight decreased [Unknown]
  - Circumstance or information capable of leading to medication error [Recovered/Resolved]
  - Inappropriate schedule of product administration [Recovered/Resolved]
  - Dysuria [Unknown]
  - Underdose [Unknown]
  - Live birth [Unknown]
  - Vomiting [Recovered/Resolved]
  - Overdose [Unknown]
  - Urinary tract infection [Not Recovered/Not Resolved]
  - Drug exposure before pregnancy [Recovered/Resolved]
  - Systemic lupus erythematosus [Unknown]
  - Complement factor C3 decreased [Unknown]
  - Weight increased [Unknown]
  - Nervousness [Unknown]

NARRATIVE: CASE EVENT DATE: 20160920
